FAERS Safety Report 16359090 (Version 3)
Quarter: 2020Q4

REPORT INFORMATION
  Report Type: Spontaneous
  Country: US (occurrence: US)
  Receive Date: 20190527
  Receipt Date: 20201007
  Transmission Date: 20210113
  Serious: No
  Sender: FDA-Public Use
  Company Number: US-SA-2019SA139090

PATIENT

DRUGS (2)
  1. DUPIXENT [Suspect]
     Active Substance: DUPILUMAB
     Dosage: 300 MG
     Route: 058
     Dates: start: 201911
  2. DUPIXENT [Suspect]
     Active Substance: DUPILUMAB
     Indication: DERMATITIS ATOPIC
     Dosage: UNK
     Dates: start: 201902

REACTIONS (5)
  - Pruritus [Unknown]
  - Product dose omission issue [Unknown]
  - Off label use [Unknown]
  - Rash papular [Unknown]
  - Dermatitis [Unknown]

NARRATIVE: CASE EVENT DATE: 2019
